FAERS Safety Report 8530354-6 (Version None)
Quarter: 2012Q3

REPORT INFORMATION
  Report Type: 
  Country: None (occurrence: None)
  Receive Date: 20120723
  Receipt Date: 20120719
  Transmission Date: 20120928
  Serious: No
  Sender: FDA-Public Use
  Company Number: US-PFIZER INC-2012175290

PATIENT
  Age: 13 Year
  Sex: Male

DRUGS (1)
  1. VENLAFAXINE HCL [Suspect]
     Dosage: 37.5 MG (TWO AND HALF TABLETS IN A DAY)
     Route: 048

REACTIONS (1)
  - SKIN DISCOLOURATION [None]
